FAERS Safety Report 16480182 (Version 2)
Quarter: 2020Q1

REPORT INFORMATION
  Report Type: Spontaneous
  Country: US (occurrence: US)
  Receive Date: 20190626
  Receipt Date: 20200204
  Transmission Date: 20200409
  Serious: Yes (Other)
  Sender: FDA-Public Use
  Company Number: US-ASTRAZENECA-2019SE92159

PATIENT
  Age: 25323 Day
  Sex: Male
  Weight: 102.1 kg

DRUGS (33)
  1. PRILOSEC [Suspect]
     Active Substance: OMEPRAZOLE MAGNESIUM
     Indication: GASTROOESOPHAGEAL REFLUX DISEASE
     Route: 048
     Dates: start: 1989, end: 2000
  2. PRAVASTATIN. [Concomitant]
     Active Substance: PRAVASTATIN
     Indication: BLOOD CHOLESTEROL
     Route: 065
     Dates: start: 2013, end: 2019
  3. MUPIROCIN. [Concomitant]
     Active Substance: MUPIROCIN
  4. FAMOTIDINE. [Concomitant]
     Active Substance: FAMOTIDINE
  5. AMIODARONE [Concomitant]
     Active Substance: AMIODARONE
  6. PRILOSEC [Suspect]
     Active Substance: OMEPRAZOLE MAGNESIUM
     Indication: GASTROOESOPHAGEAL REFLUX DISEASE
     Route: 048
     Dates: start: 19890101, end: 20151231
  7. PRILOSEC [Suspect]
     Active Substance: OMEPRAZOLE MAGNESIUM
     Indication: GASTROOESOPHAGEAL REFLUX DISEASE
     Route: 048
     Dates: start: 20020925
  8. CEPHALEXIN. [Concomitant]
     Active Substance: CEPHALEXIN
  9. PREVACID [Suspect]
     Active Substance: LANSOPRAZOLE
     Indication: GASTROOESOPHAGEAL REFLUX DISEASE
     Route: 065
     Dates: start: 2001, end: 2015
  10. LIPITOR [Concomitant]
     Active Substance: ATORVASTATIN CALCIUM
  11. SUCRALFATE. [Concomitant]
     Active Substance: SUCRALFATE
  12. PRILOSEC [Suspect]
     Active Substance: OMEPRAZOLE MAGNESIUM
     Indication: GASTROOESOPHAGEAL REFLUX DISEASE
     Route: 065
     Dates: start: 2015
  13. PREVACID [Suspect]
     Active Substance: LANSOPRAZOLE
     Indication: GASTROOESOPHAGEAL REFLUX DISEASE
     Route: 065
     Dates: start: 19890101, end: 20151231
  14. METFORMIN [Concomitant]
     Active Substance: METFORMIN HYDROCHLORIDE
     Indication: DIABETES MELLITUS
     Route: 065
     Dates: start: 2016, end: 2019
  15. NITROGLYCER [Concomitant]
     Indication: CHEST PAIN
     Route: 065
     Dates: start: 2016, end: 2019
  16. VITAMIN B12 [Concomitant]
     Active Substance: CYANOCOBALAMIN
     Indication: ASTHENIA
     Route: 065
     Dates: start: 2019
  17. DIGITEK [Concomitant]
     Active Substance: DIGOXIN
  18. VIAGRA [Concomitant]
     Active Substance: SILDENAFIL CITRATE
  19. NITROSTAT [Concomitant]
     Active Substance: NITROGLYCERIN
  20. VITAMIN D3 [Concomitant]
     Active Substance: CHOLECALCIFEROL
     Indication: ASTHENIA
     Route: 065
     Dates: start: 2019
  21. FLUTICASONE. [Concomitant]
     Active Substance: FLUTICASONE
  22. ZITHROMAX [Concomitant]
     Active Substance: AZITHROMYCIN DIHYDRATE
  23. PREVACID [Suspect]
     Active Substance: LANSOPRAZOLE
     Indication: GASTROOESOPHAGEAL REFLUX DISEASE
     Route: 065
     Dates: start: 20021205
  24. PAROXETINE. [Concomitant]
     Active Substance: PAROXETINE
     Indication: DEPRESSION
     Route: 065
     Dates: start: 2014, end: 2019
  25. ZETIA [Concomitant]
     Active Substance: EZETIMIBE
  26. SIMVASTATIN. [Concomitant]
     Active Substance: SIMVASTATIN
  27. DIAZEPAM. [Concomitant]
     Active Substance: DIAZEPAM
  28. GLEMEPRIDE [Concomitant]
     Indication: DIABETES MELLITUS
     Route: 065
     Dates: start: 2016, end: 2019
  29. ASPIRIN. [Concomitant]
     Active Substance: ASPIRIN
     Indication: ANTICOAGULANT THERAPY
     Route: 065
     Dates: start: 1998
  30. VITAMIN B6 [Concomitant]
     Active Substance: PYRIDOXINE HYDROCHLORIDE
     Indication: ASTHENIA
     Route: 065
     Dates: start: 2019
  31. LANOXIN [Concomitant]
     Active Substance: DIGOXIN
  32. COLLAGENASE SANTYL [Concomitant]
     Active Substance: COLLAGENASE CLOSTRIDIUM HISTOLYTICUM
  33. PRAVACHOL [Concomitant]
     Active Substance: PRAVASTATIN SODIUM

REACTIONS (3)
  - Renal failure [Unknown]
  - Chronic kidney disease [Not Recovered/Not Resolved]
  - Acute kidney injury [Unknown]

NARRATIVE: CASE EVENT DATE: 20170330
